FAERS Safety Report 22274282 (Version 2)
Quarter: 2023Q2

REPORT INFORMATION
  Report Type: Spontaneous
  Country: US (occurrence: US)
  Receive Date: 20230502
  Receipt Date: 20230613
  Transmission Date: 20230721
  Serious: No
  Sender: FDA-Public Use
  Company Number: US-PFIZER INC-202300174066

PATIENT
  Age: 57 Year
  Sex: Female
  Weight: 77.098 kg

DRUGS (1)
  1. NURTEC ODT [Suspect]
     Active Substance: RIMEGEPANT SULFATE
     Indication: Migraine
     Dosage: UNK, 1X/DAY
     Dates: start: 202211, end: 202304

REACTIONS (1)
  - Drug ineffective [Unknown]
